FAERS Safety Report 9515588 (Version 1)
Quarter: 2013Q3

REPORT INFORMATION
  Report Type: Spontaneous
  Country: JP (occurrence: JP)
  Receive Date: 20130911
  Receipt Date: 20130911
  Transmission Date: 20140515
  Serious: Yes (Other)
  Sender: FDA-Public Use
  Company Number: JP-ASTELLAS-2013JP009222

PATIENT
  Age: 2 Year
  Sex: Male

DRUGS (13)
  1. TACROLIMUS [Suspect]
     Indication: PROPHYLAXIS AGAINST GRAFT VERSUS HOST DISEASE
     Route: 065
  2. HYDROCORTISONE [Concomitant]
     Indication: 21-HYDROXYLASE DEFICIENCY
     Dosage: 12 MG/M2, UNKNOWN/D
     Route: 048
  3. HYDROCORTISONE [Concomitant]
     Dosage: 20 MG/M2, UNKNOWN/D
     Route: 048
  4. HYDROCORTISONE [Concomitant]
     Indication: 21-HYDROXYLASE DEFICIENCY
     Route: 042
  5. 9ALPHA-FLUDROCORTISONE [Concomitant]
     Indication: 21-HYDROXYLASE DEFICIENCY
     Dosage: 120 UG/M2, UNKNOWN/D
     Route: 048
  6. 9ALPHA-FLUDROCORTISONE [Concomitant]
     Dosage: 40 UG/M2, UNKNOWN/D
     Route: 048
  7. 9ALPHA-FLUDROCORTISONE [Concomitant]
     Indication: 21-HYDROXYLASE DEFICIENCY
     Route: 042
  8. TEMOZOLOMIDE [Concomitant]
     Route: 065
  9. BUSULFAN [Concomitant]
     Indication: PREMEDICATION
     Dosage: 4 MG/KG, UNKNOWN/D
     Route: 065
  10. FLUDARABINE [Concomitant]
     Indication: PREMEDICATION
     Dosage: 25 MG/M2, UNKNOWN/D
     Route: 065
  11. MELPHALAN [Concomitant]
     Indication: PREMEDICATION
     Dosage: 40 MG/KG, UNKNOWN/D
     Route: 065
  12. ETOPOSIDE [Concomitant]
     Indication: PREMEDICATION
     Dosage: 100 MG/KG, UNKNOWN/D
     Route: 065
  13. ATG                                /00575401/ [Concomitant]
     Indication: PREMEDICATION
     Dosage: 2.4 MG/KG, UNKNOWN/D
     Route: 065

REACTIONS (2)
  - Drug ineffective [Unknown]
  - Graft versus host disease [Unknown]
